FAERS Safety Report 24437557 (Version 2)
Quarter: 2024Q4

REPORT INFORMATION
  Report Type: Spontaneous
  Country: CN (occurrence: CN)
  Receive Date: 20241015
  Receipt Date: 20241022
  Transmission Date: 20250114
  Serious: Yes (Other)
  Sender: BOEHRINGER INGELHEIM
  Company Number: CN-BoehringerIngelheim-2024-BI-056882

PATIENT
  Age: 55 Year
  Sex: Female
  Weight: 61.0 kg

DRUGS (8)
  1. LINAGLIPTIN [Suspect]
     Active Substance: LINAGLIPTIN
     Indication: Type 2 diabetes mellitus
     Route: 048
     Dates: start: 20240913, end: 20240926
  2. LINAGLIPTIN [Suspect]
     Active Substance: LINAGLIPTIN
     Indication: Diabetic complication
  3. BEZAFIBRATE [Suspect]
     Active Substance: BEZAFIBRATE
     Indication: Type 2 diabetes mellitus
     Route: 048
     Dates: start: 20240913, end: 20240926
  4. BEZAFIBRATE [Suspect]
     Active Substance: BEZAFIBRATE
     Indication: Diabetic complication
  5. Zhibitai capsule [Concomitant]
     Indication: Type 2 diabetes mellitus
     Route: 048
     Dates: start: 20240913, end: 20240926
  6. Zhibitai capsule [Concomitant]
     Indication: Diabetic complication
  7. DAPAGLIFLOZIN [Concomitant]
     Active Substance: DAPAGLIFLOZIN
     Indication: Type 2 diabetes mellitus
     Route: 048
     Dates: start: 20240913, end: 20240926
  8. DAPAGLIFLOZIN [Concomitant]
     Active Substance: DAPAGLIFLOZIN
     Indication: Diabetic complication

REACTIONS (4)
  - Myocardial necrosis marker increased [Recovering/Resolving]
  - Myoglobin blood increased [Recovering/Resolving]
  - Myalgia [Recovering/Resolving]
  - Off label use [Unknown]

NARRATIVE: CASE EVENT DATE: 20240925
